FAERS Safety Report 11067925 (Version 5)
Quarter: 2015Q3

REPORT INFORMATION
  Report Type: Report from Study
  Country: CA (occurrence: CA)
  Receive Date: 20150427
  Receipt Date: 20150914
  Transmission Date: 20151125
  Serious: Yes (Other)
  Sender: FDA-Public Use
  Company Number: CA-ROCHE-1510860

PATIENT
  Age: 35 Year
  Sex: Male

DRUGS (14)
  1. AVASTIN [Suspect]
     Active Substance: BEVACIZUMAB
     Indication: APPENDIX CANCER
     Route: 042
     Dates: start: 20141120, end: 2015
  2. AVASTIN [Suspect]
     Active Substance: BEVACIZUMAB
     Dosage: LATEST DOSE ON: 06/MAY/2015
     Route: 042
     Dates: start: 20141231
  3. SYMBICORT [Concomitant]
     Active Substance: BUDESONIDE\FORMOTEROL FUMARATE DIHYDRATE
  4. FOLINIC ACID [Suspect]
     Active Substance: LEUCOVORIN
     Indication: APPENDIX CANCER
     Route: 042
     Dates: start: 20131015
  5. PANTOPRAZOLE [Concomitant]
     Active Substance: PANTOPRAZOLE SODIUM
  6. SENOKOT [Concomitant]
     Active Substance: SENNOSIDES
  7. PROCHLORPERAZINE. [Concomitant]
     Active Substance: PROCHLORPERAZINE
  8. TRAMADOL. [Concomitant]
     Active Substance: TRAMADOL
  9. APO-FUROSEMIDE [Concomitant]
  10. FLUOROURACIL. [Suspect]
     Active Substance: FLUOROURACIL
     Indication: APPENDIX CANCER
     Route: 042
     Dates: start: 20131015
  11. ONDANSETRON [Concomitant]
     Active Substance: ONDANSETRON
  12. VENTOLIN [Concomitant]
     Active Substance: ALBUTEROL SULFATE
  13. OXALIPLATIN. [Suspect]
     Active Substance: OXALIPLATIN
     Indication: APPENDIX CANCER
     Route: 042
     Dates: start: 20131015
  14. DEXAMETHASONE. [Concomitant]
     Active Substance: DEXAMETHASONE

REACTIONS (12)
  - Haematocrit decreased [Not Recovered/Not Resolved]
  - Haemoglobin decreased [Not Recovered/Not Resolved]
  - Red cell distribution width increased [Not Recovered/Not Resolved]
  - Ulcer [Unknown]
  - Red blood cell count decreased [Not Recovered/Not Resolved]
  - Neutrophil count increased [Recovered/Resolved]
  - Mean cell haemoglobin decreased [Not Recovered/Not Resolved]
  - Mean cell haemoglobin concentration decreased [Not Recovered/Not Resolved]
  - Off label use [Unknown]
  - Infusion related reaction [Unknown]
  - White blood cell count increased [Recovered/Resolved]
  - Bacterial infection [Unknown]

NARRATIVE: CASE EVENT DATE: 20141201
